FAERS Safety Report 9713740 (Version 1)
Quarter: 2013Q4

REPORT INFORMATION
  Report Type: Spontaneous
  Country: US (occurrence: US)
  Receive Date: 20131126
  Receipt Date: 20131126
  Transmission Date: 20140711
  Serious: No
  Sender: FDA-Public Use
  Company Number: US-009507513-1311USA011235

PATIENT
  Sex: Female

DRUGS (3)
  1. CLARITIN [Suspect]
     Indication: OROPHARYNGEAL PAIN
     Dosage: UNK, ONCE
     Route: 048
     Dates: start: 201311
  2. CLARITIN [Suspect]
     Indication: RHINORRHOEA
  3. SYNTHROID [Suspect]

REACTIONS (3)
  - Sneezing [Not Recovered/Not Resolved]
  - Condition aggravated [Not Recovered/Not Resolved]
  - Off label use [Unknown]
